FAERS Safety Report 10231124 (Version 1)
Quarter: 2014Q2

REPORT INFORMATION
  Report Type: Spontaneous
  Country: IT (occurrence: IT)
  Receive Date: 20140611
  Receipt Date: 20140611
  Transmission Date: 20141212
  Serious: Yes (Other)
  Sender: FDA-Public Use
  Company Number: IT-ASTRAZENECA-2014SE39213

PATIENT
  Age: 26463 Day
  Sex: Male

DRUGS (3)
  1. ZESTORETIC [Suspect]
     Indication: HYPERTENSION
     Dosage: 20+12.5 MG, 1 DOSAGE FORM DAILY
     Route: 048
     Dates: start: 20140521, end: 20140521
  2. SINVACOR [Concomitant]
     Dosage: 10 MG FILM COATED TABLETS
  3. CARDIOASPIRIN [Concomitant]
     Dosage: 100 MG GASTRORESISTANT TABLETS

REACTIONS (2)
  - Head injury [Recovering/Resolving]
  - Syncope [Recovering/Resolving]
